FAERS Safety Report 7452214-4 (Version None)
Quarter: 2011Q2

REPORT INFORMATION
  Report Type: 
  Country: None (occurrence: None)
  Receive Date: 20110502
  Receipt Date: 20110427
  Transmission Date: 20111010
  Serious: Yes (Death)
  Sender: FDA-Public Use
  Company Number: US-MEDIMMUNE-MEDI-0012412

PATIENT
  Sex: Female

DRUGS (5)
  1. SYNAGIS [Suspect]
     Dates: start: 20110111, end: 20110111
  2. DIGOXIN [Concomitant]
  3. ASPIRIN [Concomitant]
  4. LASIX [Concomitant]
  5. MULTI-VITAMIN [Concomitant]

REACTIONS (1)
  - DEATH [None]
